FAERS Safety Report 24832755 (Version 2)
Quarter: 2025Q1

REPORT INFORMATION
  Report Type: Spontaneous
  Country: FR (occurrence: FR)
  Receive Date: 20250110
  Receipt Date: 20250115
  Transmission Date: 20250408
  Serious: No
  Sender: ABBVIE
  Company Number: FR-ABBVIE-6079974

PATIENT

DRUGS (2)
  1. FOSCARBIDOPA\FOSLEVODOPA [Suspect]
     Active Substance: FOSCARBIDOPA\FOSLEVODOPA
     Indication: Product used for unknown indication
     Route: 058
  2. APOMORPHINE [Suspect]
     Active Substance: APOMORPHINE
     Indication: Product used for unknown indication
     Route: 065

REACTIONS (3)
  - Mental disorder [Unknown]
  - Hallucination [Unknown]
  - Cognitive disorder [Unknown]
